FAERS Safety Report 9953630 (Version 2)
Quarter: 2014Q1

REPORT INFORMATION
  Report Type: Spontaneous
  Country: DE (occurrence: DE)
  Receive Date: 20140304
  Receipt Date: 20140304
  Transmission Date: 20141002
  Serious: Yes (Other)
  Sender: FDA-Public Use
  Company Number: DE-BAYER-2014-018949

PATIENT
  Age: 59 Year
  Sex: Male
  Weight: 77 kg

DRUGS (5)
  1. NEXAVAR [Suspect]
     Indication: METASTATIC RENAL CELL CARCINOMA
     Dosage: 400 MG, BID
     Dates: start: 20071105, end: 20071118
  2. INTERFERON [Concomitant]
     Indication: METASTATIC RENAL CELL CARCINOMA
     Dosage: UNK
     Dates: start: 200311, end: 200711
  3. INTERFERON [Concomitant]
     Indication: METASTATIC RENAL CELL CARCINOMA
     Dosage: UNK
     Dates: start: 200711, end: 200905
  4. SUTENT [Concomitant]
     Indication: METASTATIC RENAL CELL CARCINOMA
     Dosage: UNK
     Dates: start: 200311
  5. AFINITOR [Concomitant]
     Indication: METASTATIC RENAL CELL CARCINOMA
     Dosage: UNK
     Dates: start: 200311

REACTIONS (9)
  - Toxicity to various agents [None]
  - Skin toxicity [None]
  - Blister [Recovered/Resolved]
  - Oral discomfort [Recovered/Resolved]
  - Dysphagia [Recovered/Resolved]
  - Oropharyngeal pain [Recovered/Resolved]
  - Aptyalism [Recovered/Resolved]
  - Mucous membrane disorder [Recovered/Resolved]
  - Pain in extremity [Recovered/Resolved]
